FAERS Safety Report 6621796-4 (Version None)
Quarter: 2010Q1

REPORT INFORMATION
  Report Type: 
  Country: None (occurrence: None)
  Receive Date: 20100309
  Receipt Date: 20100302
  Transmission Date: 20100710
  Serious: Yes (Hospitalization)
  Sender: FDA-Public Use
  Company Number: PHHO2010FR01727

PATIENT
  Sex: Male

DRUGS (2)
  1. UROSODEOXYCHOLIC ACID [Suspect]
     Indication: LIVER TRANSPLANT
     Dosage: UNK
  2. TACROLIMUS [Suspect]
     Indication: LIVER TRANSPLANT
     Dosage: UNK
     Route: 048
     Dates: start: 20091219

REACTIONS (3)
  - BILIARY TRACT DISORDER [None]
  - CHOLANGITIS ACUTE [None]
  - LIVER FUNCTION TEST ABNORMAL [None]
